FAERS Safety Report 23407547 (Version 1)
Quarter: 2024Q1

REPORT INFORMATION
  Report Type: Spontaneous
  Country: DE (occurrence: DE)
  Receive Date: 20240117
  Receipt Date: 20240117
  Transmission Date: 20240409
  Serious: Yes (Other)
  Sender: FDA-Public Use
  Company Number: DE-PFIZER INC-PV202400001784

PATIENT
  Age: 5 Year
  Sex: Female

DRUGS (1)
  1. ETANERCEPT [Suspect]
     Active Substance: ETANERCEPT
     Indication: Osteomyelitis chronic
     Dosage: UNK
     Route: 065

REACTIONS (6)
  - Failure to thrive [Unknown]
  - Bone disorder [Unknown]
  - Bone erosion [Unknown]
  - Pain in extremity [Unknown]
  - Off label use [Unknown]
  - Product use issue [Unknown]
